FAERS Safety Report 8816319 (Version 1)
Quarter: 2012Q4

REPORT INFORMATION
  Report Type: Spontaneous
  Country: US (occurrence: None)
  Receive Date: 20120927
  Receipt Date: 20120927
  Transmission Date: 20130627
  Serious: Yes (Hospitalization)
  Sender: FDA-Public Use
  Company Number: None

PATIENT
  Age: 64 Year
  Sex: Male
  Weight: 89.81 kg

DRUGS (9)
  1. DECITABINE [Suspect]
     Indication: MDS
     Dosage: 0.2mg/kg SQ BID
     Dates: start: 20100907, end: 20110411
  2. LEVAQUIN [Concomitant]
  3. ACETAMINOPHEN [Concomitant]
  4. ROBUVASTATIN [Concomitant]
  5. OMEPRAZOLE [Concomitant]
  6. GLIMEPIRIDE [Concomitant]
  7. METAFORMIN [Concomitant]
  8. COLACE [Concomitant]
  9. MULTIVITAMIN DAILY [Concomitant]

REACTIONS (2)
  - Febrile neutropenia [None]
  - Respiratory syncytial virus infection [None]
